FAERS Safety Report 9492057 (Version 1)
Quarter: 2013Q3

REPORT INFORMATION
  Report Type: Spontaneous
  Country: US (occurrence: US)
  Receive Date: 20130830
  Receipt Date: 20130830
  Transmission Date: 20140515
  Serious: No
  Sender: FDA-Public Use
  Company Number: US-TARO-2013P1011381

PATIENT
  Sex: Female

DRUGS (1)
  1. METRONIDAZOLE GEL USP 0.75% [Suspect]
     Indication: ERYTHEMA
     Route: 061

REACTIONS (1)
  - Drug effect incomplete [Not Recovered/Not Resolved]
